FAERS Safety Report 8803143 (Version 1)
Quarter: 2012Q4

REPORT INFORMATION
  Report Type: Report from Study
  Country: CA (occurrence: CA)
  Receive Date: 20120924
  Receipt Date: 20120924
  Transmission Date: 20130627
  Serious: Yes (Other)
  Sender: FDA-Public Use
  Company Number: CA-JNJFOC-20120906336

PATIENT
  Age: 27 Year
  Sex: Female
  Weight: 55 kg

DRUGS (5)
  1. REMICADE [Suspect]
     Indication: COLITIS ULCERATIVE
     Route: 042
     Dates: start: 20120814
  2. REMICADE [Suspect]
     Indication: COLITIS ULCERATIVE
     Dosage: loading dose 2
     Route: 042
     Dates: start: 20120731
  3. IMURAN [Concomitant]
     Route: 065
  4. SALOFALK [Concomitant]
     Route: 065
  5. PREDNISONE [Concomitant]
     Route: 065
     Dates: start: 201208

REACTIONS (2)
  - Nephrolithiasis [Unknown]
  - Influenza like illness [Recovered/Resolved]
